FAERS Safety Report 14713452 (Version 1)
Quarter: 2018Q1

REPORT INFORMATION
  Report Type: Spontaneous
  Country: US (occurrence: US)
  Receive Date: 20180330
  Receipt Date: 20180330
  Transmission Date: 20180509
  Serious: Yes (Life-Threatening, Hospitalization, Disabling)
  Sender: FDA-Public Use
  Company Number: None

PATIENT
  Age: 68 Year
  Sex: Female
  Weight: 90 kg

DRUGS (1)
  1. WARFARIN [Suspect]
     Active Substance: WARFARIN
     Indication: CARDIAC VALVE PROSTHESIS USER
     Route: 048

REACTIONS (5)
  - Anticoagulation drug level above therapeutic [None]
  - Fall [None]
  - Subarachnoid haemorrhage [None]
  - Intraventricular haemorrhage [None]
  - Head injury [None]

NARRATIVE: CASE EVENT DATE: 20180330
